FAERS Safety Report 5753528-6 (Version None)
Quarter: 2008Q2

REPORT INFORMATION
  Report Type: 
  Country: None (occurrence: None)
  Receive Date: 20080530
  Receipt Date: 20080522
  Transmission Date: 20081010
  Serious: Yes (Life-Threatening, Hospitalization, Other)
  Sender: FDA-Public Use
  Company Number: US-ROCHE-534772

PATIENT
  Sex: Female
  Weight: 93.4 kg

DRUGS (3)
  1. PEG-INTERFERON A-2A (RO 25-8310) [Suspect]
     Dosage: FORM: PRE-FILLED SYRINGE.
     Route: 065
     Dates: start: 20070921, end: 20071120
  2. RIBAVIRIN [Suspect]
     Dosage: STRENGTH IS 200 MG WITH DOSING REGIMEN OF TWO IN THE A.M. AND THREE IN THE P.M.
     Route: 065
     Dates: start: 20070921
  3. RIBAVIRIN [Suspect]
     Route: 065
     Dates: end: 20071120

REACTIONS (7)
  - ASTHENIA [None]
  - BENIGN INTRACRANIAL HYPERTENSION [None]
  - DYSPNOEA EXERTIONAL [None]
  - HAEMATOCRIT DECREASED [None]
  - HAEMOGLOBIN DECREASED [None]
  - HEART RATE INCREASED [None]
  - PYREXIA [None]
